FAERS Safety Report 6036261-5 (Version None)
Quarter: 2009Q1

REPORT INFORMATION
  Report Type: 
  Country: None (occurrence: None)
  Receive Date: 20090113
  Receipt Date: 20090105
  Transmission Date: 20090719
  Serious: Yes (Hospitalization, Disabling, Other)
  Sender: FDA-Public Use
  Company Number: PHHY2008FR31676

PATIENT
  Sex: Female

DRUGS (1)
  1. ZOMETA [Suspect]
     Indication: RHEUMATOID ARTHRITIS
     Dosage: UNK
     Route: 042
     Dates: start: 20080922

REACTIONS (10)
  - ASTHENIA [None]
  - BLOOD PRESSURE DECREASED [None]
  - CONJUNCTIVAL OEDEMA [None]
  - EPISCLERITIS [None]
  - EYE PAIN [None]
  - HEADACHE [None]
  - INFLUENZA LIKE ILLNESS [None]
  - RHEUMATOID ARTHRITIS [None]
  - SCLERITIS [None]
  - VISUAL ACUITY REDUCED [None]
